FAERS Safety Report 23954708 (Version 3)
Quarter: 2025Q1

REPORT INFORMATION
  Report Type: Spontaneous
  Country: US (occurrence: US)
  Receive Date: 20240610
  Receipt Date: 20250111
  Transmission Date: 20250408
  Serious: Yes (Disabling, Other)
  Sender: AMGEN
  Company Number: US-AMGEN-USASP2024109732

PATIENT
  Age: 75 Year
  Sex: Male
  Weight: 84 kg

DRUGS (89)
  1. TEPEZZA [Suspect]
     Active Substance: TEPROTUMUMAB-TRBW
     Indication: Endocrine ophthalmopathy
     Route: 042
     Dates: start: 202303
  2. TEPEZZA [Suspect]
     Active Substance: TEPROTUMUMAB-TRBW
     Indication: Graves^ disease
  3. ALBUTEROL SULFATE [Concomitant]
     Active Substance: ALBUTEROL SULFATE
     Indication: Cough
     Route: 065
  4. ALBUTEROL SULFATE [Concomitant]
     Active Substance: ALBUTEROL SULFATE
     Route: 065
     Dates: start: 20230105
  5. AZELASTINE [Concomitant]
     Active Substance: AZELASTINE
     Route: 065
  6. AZELASTINE [Concomitant]
     Active Substance: AZELASTINE
     Dosage: UNK, BID (UNK (137 MICROGRAM NASAL SPRAY AEROSOL, 1 SPRAY IN EACH NOSTRIL)
     Route: 065
     Dates: start: 20230515
  7. AZELASTINE [Concomitant]
     Active Substance: AZELASTINE
     Dosage: UNK, BID (UNK (137 MICROGRAM NASAL SPRAY AEROSOL, 1 SPRAY IN EACH NOSTRIL)
     Route: 065
     Dates: start: 20231127
  8. CREON [Concomitant]
     Active Substance: PANCRELIPASE AMYLASE\PANCRELIPASE LIPASE\PANCRELIPASE PROTEASE
     Route: 048
  9. CREON [Concomitant]
     Active Substance: PANCRELIPASE AMYLASE\PANCRELIPASE LIPASE\PANCRELIPASE PROTEASE
     Route: 048
     Dates: start: 20231002
  10. CREON [Concomitant]
     Active Substance: PANCRELIPASE AMYLASE\PANCRELIPASE LIPASE\PANCRELIPASE PROTEASE
     Route: 048
     Dates: start: 20240523
  11. EPINEPHRINE [Concomitant]
     Active Substance: EPINEPHRINE
     Indication: Anaphylactic reaction
     Route: 065
  12. EPINEPHRINE [Concomitant]
     Active Substance: EPINEPHRINE
     Route: 065
     Dates: start: 20230306
  13. EPINEPHRINE [Concomitant]
     Active Substance: EPINEPHRINE
     Route: 065
     Dates: start: 20240509
  14. VITAMIN D2 [Concomitant]
     Active Substance: ERGOCALCIFEROL
     Dosage: 1250 MICROGRAM, QWK (1,250 MCG (50,000 UNIT) CAPSULE)
     Route: 048
  15. VITAMIN D2 [Concomitant]
     Active Substance: ERGOCALCIFEROL
     Dosage: 1250 MICROGRAM, QWK (1,250 MCG (50,000 UNIT) CAPSULE)
     Route: 048
     Dates: start: 20231010
  16. VITAMIN D2 [Concomitant]
     Active Substance: ERGOCALCIFEROL
     Dosage: 1250 MICROGRAM, QWK (1,250 MCG (50,000 UNIT) CAPSULE)
     Route: 048
     Dates: start: 20240701
  17. FAMOTIDINE [Concomitant]
     Active Substance: FAMOTIDINE
     Dosage: 1 DOSAGE FORM, BID (40 MG TABLET)
     Route: 048
  18. FAMOTIDINE [Concomitant]
     Active Substance: FAMOTIDINE
     Dosage: 1 DOSAGE FORM, BID (40 MG TABLET)
     Route: 048
     Dates: start: 20231021
  19. FAMOTIDINE [Concomitant]
     Active Substance: FAMOTIDINE
     Dosage: 1 DOSAGE FORM, BID (40 MG TABLET)
     Route: 048
     Dates: start: 20240720
  20. FLUTICASONE PROPIONATE [Concomitant]
     Active Substance: FLUTICASONE PROPIONATE
     Dosage: UNK UNK, BID (50 MCG/ACTUATION NASAL SPRAY,SUSPENSION) (SHAKE LIQUID AND USE 1 SPRAY IN EACH NOSTRIL
     Route: 045
  21. FLUTICASONE PROPIONATE [Concomitant]
     Active Substance: FLUTICASONE PROPIONATE
     Dosage: UNK UNK, BID (50 MCG/ACTUATION NASAL SPRAY,SUSPENSION) (SHAKE LIQUID AND USE 1 SPRAY IN EACH NOSTRIL
     Route: 045
     Dates: start: 20230903
  22. FLUTICASONE PROPIONATE [Concomitant]
     Active Substance: FLUTICASONE PROPIONATE
     Dosage: UNK UNK, BID (50 MCG/ACTUATION NASAL SPRAY,SUSPENSION) (SHAKE LIQUID AND USE 1 SPRAY IN EACH NOSTRIL
     Route: 045
     Dates: start: 20231121
  23. GABAPENTIN [Concomitant]
     Active Substance: GABAPENTIN
     Route: 048
  24. GABAPENTIN [Concomitant]
     Active Substance: GABAPENTIN
     Route: 048
     Dates: start: 20230811
  25. GABAPENTIN [Concomitant]
     Active Substance: GABAPENTIN
     Route: 048
     Dates: start: 20240508
  26. HYDROCHLOROTHIAZIDE [Concomitant]
     Active Substance: HYDROCHLOROTHIAZIDE
     Dosage: 12.5 MILLIGRAM, QD
     Route: 048
  27. HYDROCHLOROTHIAZIDE [Concomitant]
     Active Substance: HYDROCHLOROTHIAZIDE
     Dosage: 12.5 MILLIGRAM, QD
     Route: 048
     Dates: start: 20231006
  28. HYDROCODONE [Concomitant]
     Active Substance: HYDROCODONE
     Route: 048
  29. HYDROCODONE [Concomitant]
     Active Substance: HYDROCODONE
     Route: 048
     Dates: start: 20231010
  30. ACETAMINOPHEN [Concomitant]
     Active Substance: ACETAMINOPHEN
     Route: 048
  31. KETOROLAC [Concomitant]
     Active Substance: KETOROLAC TROMETHAMINE
     Indication: Eye pain
     Route: 047
  32. KETOROLAC [Concomitant]
     Active Substance: KETOROLAC TROMETHAMINE
     Route: 047
     Dates: start: 20240521
  33. LANSOPRAZOLE [Concomitant]
     Active Substance: LANSOPRAZOLE
     Dosage: UNK UNK, QD (TAKE 1 TO 2 CAPSULES) (30 MG)
     Route: 048
  34. LANSOPRAZOLE [Concomitant]
     Active Substance: LANSOPRAZOLE
     Dosage: UNK UNK, QD (TAKE 1 TO 2 CAPSULES) (30 MG)
     Route: 048
     Dates: start: 20230723
  35. LEVOTHYROXINE [Concomitant]
     Active Substance: LEVOTHYROXINE
     Dosage: 112 MICROGRAM, QD
     Route: 048
  36. LEVOTHYROXINE [Concomitant]
     Active Substance: LEVOTHYROXINE
     Dosage: 112 MICROGRAM, QD
     Route: 048
     Dates: start: 20230929
  37. LEVOTHYROXINE [Concomitant]
     Active Substance: LEVOTHYROXINE
     Dosage: 112 MICROGRAM, QD
     Route: 048
     Dates: start: 20240816
  38. LIOTHYRONINE [Concomitant]
     Active Substance: LIOTHYRONINE
     Dosage: 5 MICROGRAM, QD
     Route: 048
  39. LIOTHYRONINE [Concomitant]
     Active Substance: LIOTHYRONINE
     Dosage: 5 MICROGRAM, QD
     Route: 048
     Dates: start: 20240315
  40. LORATADINE [Concomitant]
     Active Substance: LORATADINE
     Dosage: 10 MILLIGRAM, QD
     Route: 048
  41. LORATADINE [Concomitant]
     Active Substance: LORATADINE
     Dosage: 10 MILLIGRAM, QD
     Route: 048
     Dates: start: 20230814
  42. LORATADINE [Concomitant]
     Active Substance: LORATADINE
     Dosage: 10 MILLIGRAM, QD
     Route: 048
     Dates: start: 20240720
  43. METOPROLOL TARTRATE [Concomitant]
     Active Substance: METOPROLOL TARTRATE
     Route: 048
  44. METOPROLOL TARTRATE [Concomitant]
     Active Substance: METOPROLOL TARTRATE
     Route: 048
     Dates: start: 20230929
  45. METOPROLOL TARTRATE [Concomitant]
     Active Substance: METOPROLOL TARTRATE
     Route: 048
     Dates: start: 20240722
  46. NALOXONE [Concomitant]
     Active Substance: NALOXONE
     Route: 065
  47. NALOXONE [Concomitant]
     Active Substance: NALOXONE
     Route: 065
     Dates: start: 20230722
  48. NALOXONE [Concomitant]
     Active Substance: NALOXONE
     Route: 065
     Dates: start: 20231218
  49. OMEPRAZOLE [Concomitant]
     Active Substance: OMEPRAZOLE
     Dosage: 20 MILLIGRAM, QD
     Route: 048
  50. OMEPRAZOLE [Concomitant]
     Active Substance: OMEPRAZOLE
     Dosage: 20 MILLIGRAM, QD
     Route: 048
     Dates: start: 20230506
  51. ONDANSETRON HYDROCHLORIDE [Concomitant]
     Active Substance: ONDANSETRON HYDROCHLORIDE
     Indication: Nausea
     Route: 048
  52. ONDANSETRON HYDROCHLORIDE [Concomitant]
     Active Substance: ONDANSETRON HYDROCHLORIDE
     Route: 048
     Dates: start: 20230722
  53. OXYCODONE [Concomitant]
     Active Substance: OXYCODONE
  54. OXYCODONE [Concomitant]
     Active Substance: OXYCODONE
     Route: 065
     Dates: start: 20230809
  55. OXYCODONE [Concomitant]
     Active Substance: OXYCODONE
     Route: 065
     Dates: start: 20241218
  56. PANTOPRAZOLE [Concomitant]
     Active Substance: PANTOPRAZOLE
     Dosage: 40 MILLIGRAM, BID
     Route: 048
  57. PANTOPRAZOLE [Concomitant]
     Active Substance: PANTOPRAZOLE
     Dosage: 40 MILLIGRAM, BID
     Route: 048
     Dates: start: 20230706
  58. PANTOPRAZOLE [Concomitant]
     Active Substance: PANTOPRAZOLE
     Dosage: 40 MILLIGRAM, BID
     Route: 048
     Dates: start: 20240705
  59. PAROXETINE [Concomitant]
     Active Substance: PAROXETINE
     Dosage: 10 MILLIGRAM, BID
     Route: 048
  60. PAROXETINE [Concomitant]
     Active Substance: PAROXETINE
     Dosage: 10 MILLIGRAM, BID
     Route: 048
     Dates: start: 20230706
  61. PAROXETINE [Concomitant]
     Active Substance: PAROXETINE
     Dosage: 10 MILLIGRAM, BID
     Route: 048
     Dates: start: 20240712
  62. PROMETHAZINE [Concomitant]
     Active Substance: PROMETHAZINE HYDROCHLORIDE
     Route: 048
  63. PROMETHAZINE [Concomitant]
     Active Substance: PROMETHAZINE HYDROCHLORIDE
     Route: 048
     Dates: start: 20230506
  64. PROMETHAZINE [Concomitant]
     Active Substance: PROMETHAZINE HYDROCHLORIDE
     Route: 048
     Dates: start: 20240513
  65. SILDENAFIL [Concomitant]
     Active Substance: SILDENAFIL
     Dosage: 100 MILLIGRAM, QD
     Route: 048
  66. SILDENAFIL [Concomitant]
     Active Substance: SILDENAFIL
     Dosage: 100 MILLIGRAM, QD
     Route: 048
     Dates: start: 20240713
  67. SPIRONOLACTONE [Concomitant]
     Active Substance: SPIRONOLACTONE
     Dosage: UNK UNK, QD (1/2 TABLET) (25 MG)
     Route: 048
  68. SPIRONOLACTONE [Concomitant]
     Active Substance: SPIRONOLACTONE
     Dosage: UNK UNK, QD (1/2 TABLET) (25 MG)
     Route: 048
     Dates: start: 20240509
  69. SUCRALFATE [Concomitant]
     Active Substance: SUCRALFATE
     Dosage: 1 GRAM, QID
     Route: 048
  70. SUCRALFATE [Concomitant]
     Active Substance: SUCRALFATE
     Dosage: 1 GRAM, QID
     Route: 048
     Dates: start: 20230506
  71. TRAZODONE [Concomitant]
     Active Substance: TRAZODONE HYDROCHLORIDE
     Dosage: 150 MILLIGRAM, QD
     Route: 048
  72. TRAZODONE [Concomitant]
     Active Substance: TRAZODONE HYDROCHLORIDE
     Dosage: 150 MILLIGRAM, QD
     Route: 048
     Dates: start: 20230926
  73. TRAZODONE [Concomitant]
     Active Substance: TRAZODONE HYDROCHLORIDE
     Dosage: 150 MILLIGRAM, QD
     Route: 048
     Dates: start: 20240619
  74. INFLUENZA VIRUS VACCINE [Concomitant]
     Active Substance: INFLUENZA VIRUS VACCINE
     Dates: start: 20150824
  75. COVID-19 vaccine [Concomitant]
     Dates: start: 20210119
  76. MAGNESIUM [Concomitant]
     Active Substance: MAGNESIUM
  77. VITAMIN C [Concomitant]
     Active Substance: ASCORBIC ACID
  78. CALCIUM [Concomitant]
     Active Substance: CALCIUM
  79. ZINC [Concomitant]
     Active Substance: ZINC
  80. PROTONIX [Concomitant]
     Active Substance: PANTOPRAZOLE SODIUM
  81. CARAFATE [Concomitant]
     Active Substance: SUCRALFATE
  82. ASPIRIN [Concomitant]
     Active Substance: ASPIRIN
  83. POTASSIUM [Concomitant]
     Active Substance: POTASSIUM
  84. VITAMIN D [Concomitant]
     Active Substance: VITAMIN D NOS
  85. IRON [Concomitant]
     Active Substance: IRON
  86. FLUTICASONE [Concomitant]
     Active Substance: FLUTICASONE
  87. METOCLOPRAMIDE [Concomitant]
     Active Substance: METOCLOPRAMIDE
  88. PAXIL [Concomitant]
     Active Substance: PAROXETINE HYDROCHLORIDE
  89. CYTOMEL [Concomitant]
     Active Substance: LIOTHYRONINE SODIUM
     Route: 065

REACTIONS (49)
  - Deafness permanent [Not Recovered/Not Resolved]
  - Physical disability [Unknown]
  - Endocrine ophthalmopathy [Unknown]
  - Graves^ disease [Unknown]
  - Thrombocytopenia [Unknown]
  - Hypokalaemia [Recovered/Resolved]
  - Pancreatitis chronic [Recovering/Resolving]
  - Polyneuropathy [Unknown]
  - Injury [Unknown]
  - Emotional distress [Unknown]
  - Pain [Unknown]
  - Anxiety [Unknown]
  - Impaired quality of life [Unknown]
  - Discomfort [Unknown]
  - Physical product label issue [Unknown]
  - Tinnitus [Not Recovered/Not Resolved]
  - Spinal osteoarthritis [Unknown]
  - Intervertebral disc degeneration [Unknown]
  - Gastrooesophageal reflux disease [Unknown]
  - Hernia repair [Unknown]
  - Overgrowth syndrome [Unknown]
  - Hernia [Unknown]
  - Iron deficiency anaemia [Unknown]
  - Gastritis [Unknown]
  - Glucose tolerance impaired [Unknown]
  - Palpitations [Unknown]
  - Blood glucose increased [Unknown]
  - Blood thyroid stimulating hormone increased [Unknown]
  - Haemoglobin decreased [Unknown]
  - Haematocrit decreased [Unknown]
  - Platelet count decreased [Unknown]
  - Mean platelet volume increased [Unknown]
  - Mean platelet volume increased [Unknown]
  - Blood alkaline phosphatase decreased [Unknown]
  - Lipase increased [Unknown]
  - Red blood cell count decreased [Unknown]
  - Haematocrit decreased [Unknown]
  - Oxygen saturation decreased [Unknown]
  - Mean cell haemoglobin concentration decreased [Unknown]
  - Blood thyroid stimulating hormone increased [Unknown]
  - Tri-iodothyronine decreased [Unknown]
  - Type V hyperlipidaemia [Unknown]
  - Vitamin D deficiency [Unknown]
  - Anaemia megaloblastic [Unknown]
  - Bradycardia [Unknown]
  - Headache [Unknown]
  - Blood thyroid stimulating hormone decreased [Unknown]
  - Anti-thyroid antibody increased [Unknown]
  - High density lipoprotein decreased [Unknown]

NARRATIVE: CASE EVENT DATE: 20230615
